FAERS Safety Report 11001985 (Version 3)
Quarter: 2017Q3

REPORT INFORMATION
  Report Type: Spontaneous
  Country: US (occurrence: US)
  Receive Date: 20150408
  Receipt Date: 20170713
  Transmission Date: 20171127
  Serious: No
  Sender: FDA-Public Use
  Company Number: US-ASTELLAS-2015US010637

PATIENT
  Age: 87 Year
  Sex: Male

DRUGS (2)
  1. MYRBETRIQ [Suspect]
     Active Substance: MIRABEGRON
     Indication: URINARY RETENTION
     Dosage: 25 MG OR 50 MG (MIXED) EACH DAY
     Route: 048
     Dates: start: 201503, end: 20150415
  2. OXYBUTYNIN [Suspect]
     Active Substance: OXYBUTYNIN
     Indication: URINARY RETENTION
     Dosage: UNK UNK, UNKNOWN FREQ.
     Route: 065

REACTIONS (6)
  - Urine odour abnormal [Not Recovered/Not Resolved]
  - Urinary incontinence [Unknown]
  - Chromaturia [Not Recovered/Not Resolved]
  - Intentional product misuse [Unknown]
  - Drug ineffective [Unknown]
  - Off label use [Unknown]

NARRATIVE: CASE EVENT DATE: 20150325
